FAERS Safety Report 5108255-5 (Version None)
Quarter: 2006Q3

REPORT INFORMATION
  Report Type: 
  Country: None (occurrence: None)
  Receive Date: 20060914
  Receipt Date: 20060914
  Transmission Date: 20061208
  Serious: Yes (Hospitalization)
  Sender: FDA-Public Use
  Company Number: None

PATIENT
  Age: 70 Year
  Sex: Female
  Weight: 72 kg

DRUGS (2)
  1. GLUCOPHAGE [Suspect]
     Indication: DIABETES MELLITUS NON-INSULIN-DEPENDENT
     Dosage: 500MG DAILY PO
     Route: 048
     Dates: start: 20060501, end: 20060908
  2. CRESTOR [Suspect]
     Indication: HYPERLIPIDAEMIA
     Dosage: DAILY PO
     Route: 048
     Dates: start: 20050101, end: 20060101

REACTIONS (1)
  - RENAL FAILURE ACUTE [None]
